FAERS Safety Report 18097814 (Version 1)
Quarter: 2020Q3

REPORT INFORMATION
  Report Type: Spontaneous
  Country: US (occurrence: US)
  Receive Date: 20200730
  Receipt Date: 20200730
  Transmission Date: 20201103
  Serious: Yes (Hospitalization)
  Sender: FDA-Public Use
  Company Number: None

PATIENT
  Age: 31 Year
  Sex: Female

DRUGS (1)
  1. TOBI PODHALER [Suspect]
     Active Substance: TOBRAMYCIN
     Route: 055

REACTIONS (5)
  - Product dose omission issue [None]
  - Liver disorder [None]
  - COVID-19 [None]
  - Renal disorder [None]
  - Thrombosis [None]

NARRATIVE: CASE EVENT DATE: 20200715
